FAERS Safety Report 8060549-X (Version None)
Quarter: 2012Q1

REPORT INFORMATION
  Report Type: 
  Country: None (occurrence: None)
  Receive Date: 20120120
  Receipt Date: 20120113
  Transmission Date: 20120608
  Serious: Yes (Other)
  Sender: FDA-Public Use
  Company Number: CHPA2012US001338

PATIENT
  Age: 33 Year
  Sex: Female

DRUGS (1)
  1. EXCEDRIN (MIGRAINE) [Suspect]
     Indication: MIGRAINE
     Dosage: 2 DF, QD
     Route: 048
     Dates: end: 20120113

REACTIONS (5)
  - VOMITING [None]
  - MALAISE [None]
  - FEELING JITTERY [None]
  - HYPOAESTHESIA [None]
  - BLOOD PRESSURE INCREASED [None]
